FAERS Safety Report 17004922 (Version 1)
Quarter: 2019Q4

REPORT INFORMATION
  Report Type: Spontaneous
  Country: US (occurrence: US)
  Receive Date: 20191107
  Receipt Date: 20191107
  Transmission Date: 20200122
  Serious: No
  Sender: FDA-Public Use
  Company Number: US-BEH-2019108997

PATIENT
  Sex: Female

DRUGS (1)
  1. HIZENTRA [Suspect]
     Active Substance: HUMAN IMMUNOGLOBULIN G
     Indication: DERMATOMYOSITIS
     Dosage: 12 GRAM, QW
     Route: 058
     Dates: start: 20191001

REACTIONS (3)
  - No adverse event [Unknown]
  - Sinusitis [Unknown]
  - Product use in unapproved indication [Unknown]
